FAERS Safety Report 9241451 (Version 3)
Quarter: 2013Q3

REPORT INFORMATION
  Report Type: Spontaneous
  Country: US (occurrence: US)
  Receive Date: 20130419
  Receipt Date: 20130905
  Transmission Date: 20140515
  Serious: No
  Sender: FDA-Public Use
  Company Number: US-BIOGENIDEC-2013BI034467

PATIENT
  Sex: Male

DRUGS (1)
  1. AVONEX [Suspect]
     Indication: MULTIPLE SCLEROSIS
     Route: 030
     Dates: start: 20061218

REACTIONS (9)
  - Memory impairment [Not Recovered/Not Resolved]
  - Arthropathy [Not Recovered/Not Resolved]
  - Diabetes mellitus [Not Recovered/Not Resolved]
  - Hypertension [Not Recovered/Not Resolved]
  - Infectious thyroiditis [Not Recovered/Not Resolved]
  - Spinal cord disorder [Not Recovered/Not Resolved]
  - Headache [Not Recovered/Not Resolved]
  - Influenza like illness [Recovered/Resolved with Sequelae]
  - Pruritus [Not Recovered/Not Resolved]
